FAERS Safety Report 4880924-1 (Version None)
Quarter: 2005Q4

REPORT INFORMATION
  Report Type: 
  Country: None (occurrence: None)
  Receive Date: 20051223
  Receipt Date: 20051025
  Transmission Date: 20060501
  Serious: No
  Sender: FDA-Public Use
  Company Number: 05P-163-0315225-00

PATIENT
  Sex: Female

DRUGS (18)
  1. HUMIRA [Suspect]
     Indication: RHEUMATOID ARTHRITIS
     Dosage: 40 MG, 1 IN 2 WK, SUBCUTANEOUS
     Route: 058
     Dates: start: 20050901, end: 20051002
  2. DIOVAN HCT [Concomitant]
  3. CETIRIZINE HYDROCHLORIDE [Concomitant]
  4. OXYBUTYNIN HYDROCHLORIDE [Concomitant]
  5. UNSPECIFIED THYROID MEDICATION [Concomitant]
  6. PREDNISONE [Concomitant]
  7. AZATHIOPRINE [Concomitant]
  8. LANSOPRAZOLE [Concomitant]
  9. AURANOFIN [Concomitant]
  10. MAGNESIUM [Concomitant]
  11. CARVEDILOL [Concomitant]
  12. ZETIA [Concomitant]
  13. POTASSIUM CHLORIDE [Concomitant]
  14. OESTRANORM [Concomitant]
  15. ALENDRONATE SODIUM [Concomitant]
  16. FLUVASTATIN SODIUM [Concomitant]
  17. FOLIC ACID [Concomitant]
  18. MAGNESIUM [Concomitant]

REACTIONS (5)
  - INJECTION SITE BRUISING [None]
  - INJECTION SITE IRRITATION [None]
  - INJECTION SITE SWELLING [None]
  - INJECTION SITE ULCER [None]
  - INJECTION SITE VESICLES [None]
